FAERS Safety Report 5090040-4 (Version None)
Quarter: 2006Q3

REPORT INFORMATION
  Report Type: 
  Country: None (occurrence: None)
  Receive Date: 20060823
  Receipt Date: 20060812
  Transmission Date: 20061208
  Serious: Yes (Other)
  Sender: FDA-Public Use
  Company Number: 2006058424

PATIENT
  Sex: Female

DRUGS (8)
  1. LYRICA [Suspect]
     Indication: RADICULAR PAIN
     Dosage: 300 MG (2 IN 1 D)
  2. GABAPENTIN [Suspect]
     Indication: RADICULAR PAIN
     Dosage: 2600 MG
  3. FLEXERIL [Concomitant]
  4. TRAMADOL HCL [Concomitant]
  5. ATARAX [Concomitant]
  6. ZANAFLEX [Concomitant]
  7. OXYCONTIN [Concomitant]
  8. CLONAZEPAM [Concomitant]

REACTIONS (6)
  - DRUG INEFFECTIVE [None]
  - GENERALISED OEDEMA [None]
  - LUMBAR RADICULOPATHY [None]
  - NERVE ROOT LESION [None]
  - THERAPY NON-RESPONDER [None]
  - WEIGHT INCREASED [None]
